FAERS Safety Report 16984952 (Version 8)
Quarter: 2020Q2

REPORT INFORMATION
  Report Type: Spontaneous
  Country: US (occurrence: US)
  Receive Date: 20191101
  Receipt Date: 20200403
  Transmission Date: 20200713
  Serious: Yes (Hospitalization, Other)
  Sender: FDA-Public Use
  Company Number: US-CATALYST PHARMACEUTICALS, INC-2019CAT00536

PATIENT
  Age: 88 Year
  Sex: Female
  Weight: 92.52 kg

DRUGS (33)
  1. FIRDAPSE [Suspect]
     Active Substance: AMIFAMPRIDINE
     Indication: MYASTHENIC SYNDROME
     Dosage: 20 MG, 3X/DAY
     Route: 048
     Dates: start: 201905, end: 2019
  2. AMIODARONE [Concomitant]
     Active Substance: AMIODARONE
     Dosage: 200 MG, 1X/DAY
     Route: 048
  3. LATANOPROST. [Concomitant]
     Active Substance: LATANOPROST
     Dosage: 1 DROP, 1X/DAY (RIGHT EYE, EVENING)
     Route: 047
  4. RANITIDINE. [Concomitant]
     Active Substance: RANITIDINE
  5. COENZYME Q10 [Concomitant]
     Active Substance: UBIDECARENONE
     Dosage: 100 MG, 1X/DAY
     Route: 048
  6. DIGOXIN. [Concomitant]
     Active Substance: DIGOXIN
     Dosage: 125 ?G, 3X/WEEK (MON, WED, FRI)
     Route: 048
  7. VITAMIN B12 [Concomitant]
     Active Substance: CYANOCOBALAMIN
     Dosage: 1000 ?G, 1X/MONTH
  8. FIRDAPSE [Suspect]
     Active Substance: AMIFAMPRIDINE
     Dosage: 5 MG, 1X/DAY
     Route: 048
     Dates: start: 2019
  9. OMEGA 3 [Concomitant]
     Active Substance: OMEGA-3 FATTY ACIDS
  10. OMEPRAZOLE. [Concomitant]
     Active Substance: OMEPRAZOLE
  11. PRESERVISON AREDS 2 [Concomitant]
  12. PEPCID [Concomitant]
     Active Substance: FAMOTIDINE
  13. FIRDAPSE [Suspect]
     Active Substance: AMIFAMPRIDINE
     Dosage: TITRATING
     Route: 048
  14. NIACIN. [Concomitant]
     Active Substance: NIACIN
  15. VITAMIN D3 [Concomitant]
     Active Substance: CHOLECALCIFEROL
     Dosage: 5000 U, 1X/DAY
  16. TAPENTADOL [Suspect]
     Active Substance: TAPENTADOL
  17. FUROSEMIDE. [Concomitant]
     Active Substance: FUROSEMIDE
     Dosage: 20 MG
     Route: 048
  18. MIDODRINE [Concomitant]
     Active Substance: MIDODRINE
     Dosage: 5 MG, 2X/DAY PC
     Route: 048
  19. TYLENOL [Concomitant]
     Active Substance: ACETAMINOPHEN
     Dosage: 650 MG, UP TO 4X/DAY (EVERY 6 HOURS AS NEEDED)
     Route: 048
  20. TAMSULOSIN [Concomitant]
     Active Substance: TAMSULOSIN
     Dosage: 1 CAPSULES, 1X/DAY
  21. LIDOCAINE-PRILOCAINE [Concomitant]
     Active Substance: LIDOCAINE\PRILOCAINE
  22. FISH OIL [Concomitant]
     Active Substance: FISH OIL
  23. MULTIVITAMIN [Concomitant]
     Active Substance: VITAMINS
  24. PREDNISONE. [Concomitant]
     Active Substance: PREDNISONE
     Dosage: 20 MG, 1X/DAY
     Route: 048
  25. PROLIA [Concomitant]
     Active Substance: DENOSUMAB
  26. VOLATREN [Concomitant]
     Dosage: 2 G, 3X/DAY
     Route: 061
  27. DENOSUMAB [Concomitant]
     Active Substance: DENOSUMAB
     Dosage: UNK, 1X/MONTH
     Route: 058
  28. BACTRIM [Suspect]
     Active Substance: SULFAMETHOXAZOLE\TRIMETHOPRIM
     Dosage: UNK
     Dates: start: 2019, end: 20191203
  29. COLACE [Concomitant]
     Active Substance: DOCUSATE SODIUM
  30. MAG OXIDE [Concomitant]
     Active Substance: MAGNESIUM OXIDE
     Dosage: 400 MG, 2X/WEEK (MON AND THU)
     Route: 048
  31. METOPROLOL TARTRATE. [Concomitant]
     Active Substance: METOPROLOL TARTRATE
     Dosage: 12.5 MG, 2X/DAY
     Route: 048
  32. CITRA CAL PLUS D 3 [Concomitant]
  33. XARELTO [Concomitant]
     Active Substance: RIVAROXABAN
     Dosage: 15 MG, 1X/DAY
     Route: 048

REACTIONS (19)
  - Septic shock [Recovered/Resolved]
  - Performance status decreased [Not Recovered/Not Resolved]
  - Nephrolithiasis [Recovering/Resolving]
  - Klebsiella sepsis [Recovered/Resolved]
  - Oedema peripheral [Not Recovered/Not Resolved]
  - Asthenia [Not Recovered/Not Resolved]
  - Urinary tract infection [Recovered/Resolved]
  - Nephropathy toxic [Recovering/Resolving]
  - Toxicity to various agents [Recovered/Resolved]
  - Atrial fibrillation [Recovering/Resolving]
  - Tremor [Recovering/Resolving]
  - Contusion [Recovering/Resolving]
  - Decubitus ulcer [Recovering/Resolving]
  - Drug interaction [Recovered/Resolved]
  - Pain in extremity [Unknown]
  - Muscular weakness [Not Recovered/Not Resolved]
  - Proteus infection [Recovered/Resolved]
  - Acute kidney injury [Recovered/Resolved]
  - Fall [Unknown]

NARRATIVE: CASE EVENT DATE: 2019
